FAERS Safety Report 19436976 (Version 1)
Quarter: 2021Q2

REPORT INFORMATION
  Report Type: Spontaneous
  Country: CA (occurrence: CA)
  Receive Date: 20210618
  Receipt Date: 20210618
  Transmission Date: 20210717
  Serious: Yes (Other)
  Sender: FDA-Public Use
  Company Number: CA-B.I. PHARMACEUTICALS,INC./RIDGEFIELD-2021-BI-110162

PATIENT
  Age: 68 Year
  Sex: Female
  Weight: 132 kg

DRUGS (5)
  1. BUDESONIDE;FORMOTEROL FUMARATE [Suspect]
     Active Substance: BUDESONIDE\FORMOTEROL FUMARATE
     Indication: ASTHMA
     Dosage: 2 DF
  2. PREDNISONE. [Suspect]
     Active Substance: PREDNISONE
     Indication: PRODUCT USED FOR UNKNOWN INDICATION
  3. CETIRIZINE [Suspect]
     Active Substance: CETIRIZINE HYDROCHLORIDE
     Indication: ASTHMA
  4. SALBUTAMOL SULFATE [Suspect]
     Active Substance: ALBUTEROL SULFATE
     Indication: PRODUCT USED FOR UNKNOWN INDICATION
     Dosage: 2 DF
  5. SPIRIVA [Suspect]
     Active Substance: TIOTROPIUM BROMIDE MONOHYDRATE
     Indication: ASTHMA
     Dosage: 2 DOSAGE FROM 2 EVERY DAY

REACTIONS (12)
  - Blood count abnormal [Unknown]
  - Reversible airways obstruction [Unknown]
  - Loss of personal independence in daily activities [Unknown]
  - Therapeutic product effect incomplete [Unknown]
  - Obstructive airways disorder [Unknown]
  - Dyspnoea exertional [Unknown]
  - Multiple allergies [Unknown]
  - Wheezing [Unknown]
  - Asthma [Unknown]
  - Productive cough [Unknown]
  - Sleep disorder due to a general medical condition [Unknown]
  - Dyspnoea [Unknown]
